FAERS Safety Report 17646217 (Version 1)
Quarter: 2020Q2

REPORT INFORMATION
  Report Type: Spontaneous
  Country: US (occurrence: US)
  Receive Date: 20200408
  Receipt Date: 20200408
  Transmission Date: 20200713
  Serious: No
  Sender: FDA-Public Use
  Company Number: NVSC2020US094905

PATIENT
  Age: 77 Year

DRUGS (4)
  1. PREDNISONE. [Suspect]
     Active Substance: PREDNISONE
     Indication: MYASTHENIA GRAVIS
     Dosage: 5 MG, QD
     Route: 065
  2. DOCETAXEL. [Concomitant]
     Active Substance: DOCETAXEL
     Indication: BLADDER CANCER
     Route: 043
  3. GEMCITABINE. [Concomitant]
     Active Substance: GEMCITABINE
     Indication: BLADDER CANCER
     Route: 043
  4. VACCINE, BACILLUS CALMETTE-GUERIN [Suspect]
     Active Substance: BCG VACCINE
     Indication: BLADDER CANCER
     Dosage: UNK
     Route: 043

REACTIONS (1)
  - Infection reactivation [Unknown]
